FAERS Safety Report 11740967 (Version 1)
Quarter: 2015Q4

REPORT INFORMATION
  Report Type: Report from Study
  Country: BR (occurrence: BR)
  Receive Date: 20151115
  Receipt Date: 20151115
  Transmission Date: 20160304
  Serious: Yes (Death)
  Sender: FDA-Public Use
  Company Number: PHHY2015BR148378

PATIENT
  Sex: Male
  Weight: 140 kg

DRUGS (1)
  1. DIOVAN AMLO [Suspect]
     Active Substance: AMLODIPINE\VALSARTAN
     Indication: HYPERTENSION
     Dosage: 1 DF (320/5 MG), BID (1 IN THE MORNING, 1 AT NIGHT)
     Route: 065

REACTIONS (3)
  - Hydrocephalus [Fatal]
  - Type 2 diabetes mellitus [Fatal]
  - Intracranial aneurysm [Fatal]
